FAERS Safety Report 17571015 (Version 5)
Quarter: 2020Q3

REPORT INFORMATION
  Report Type: Spontaneous
  Country: US (occurrence: US)
  Receive Date: 20200323
  Receipt Date: 20200908
  Transmission Date: 20201102
  Serious: Yes (Hospitalization, Other)
  Sender: FDA-Public Use
  Company Number: US-PFIZER INC-2020121076

PATIENT
  Age: 67 Year
  Sex: Male
  Weight: 58.97 kg

DRUGS (5)
  1. FOLIC ACID. [Concomitant]
     Active Substance: FOLIC ACID
     Dosage: 1 MG, DAILY
  2. HYDROXYCHLOROQUINE [Concomitant]
     Active Substance: HYDROXYCHLOROQUINE
     Dosage: 200 MG
     Dates: start: 20200501
  3. XELJANZ XR [Suspect]
     Active Substance: TOFACITINIB CITRATE
     Dosage: 11 MG, 1X/DAY
     Dates: start: 2019
  4. METHOTREXATE. [Concomitant]
     Active Substance: METHOTREXATE
     Dosage: 2.5 MG, UNK
     Dates: end: 2019
  5. XELJANZ XR [Suspect]
     Active Substance: TOFACITINIB CITRATE
     Indication: RHEUMATOID ARTHRITIS
     Dosage: 11 MG, DAILY
     Route: 048
     Dates: start: 2018

REACTIONS (9)
  - Bowel movement irregularity [Not Recovered/Not Resolved]
  - Ear discomfort [Unknown]
  - Hypoaesthesia [Not Recovered/Not Resolved]
  - Bone density decreased [Unknown]
  - Paraesthesia [Not Recovered/Not Resolved]
  - Product dose omission issue [Unknown]
  - Blood cholesterol abnormal [Unknown]
  - Pain [Not Recovered/Not Resolved]
  - Bone loss [Not Recovered/Not Resolved]
